FAERS Safety Report 21208650 (Version 1)
Quarter: 2022Q3

REPORT INFORMATION
  Report Type: Spontaneous
  Country: US (occurrence: None)
  Receive Date: 20220812
  Receipt Date: 20220812
  Transmission Date: 20221027
  Serious: Yes (Life-Threatening, Hospitalization)
  Sender: FDA-Public Use
  Company Number: None

PATIENT
  Age: 76 Year
  Sex: Male

DRUGS (2)
  1. AMLODIPINE BESYLATE [Suspect]
     Active Substance: AMLODIPINE BESYLATE
     Indication: Hypertension
     Dosage: FREQUENCY : DAILY;?
  2. TAMSULOSIN [Suspect]
     Active Substance: TAMSULOSIN

REACTIONS (8)
  - Fall [None]
  - Dizziness [None]
  - Hypoaesthesia [None]
  - Asthenia [None]
  - Pollakiuria [None]
  - Incontinence [None]
  - Benign prostatic hyperplasia [None]
  - Renal failure [None]

NARRATIVE: CASE EVENT DATE: 20220801
